FAERS Safety Report 11126612 (Version 4)
Quarter: 2022Q2

REPORT INFORMATION
  Report Type: Spontaneous
  Country: US (occurrence: US)
  Receive Date: 20150520
  Receipt Date: 20220418
  Transmission Date: 20220721
  Serious: Yes (Other)
  Sender: FDA-Public Use
  Company Number: US-PFIZER INC-2015166066

PATIENT
  Age: 40 Year
  Sex: Male

DRUGS (2)
  1. BENEFIX [Suspect]
     Active Substance: COAGULATION FACTOR IX RECOMBINANT HUMAN\ISOPROPYL ALCOHOL
     Indication: Factor IX deficiency
     Dosage: 3000 IU, UNK (FOR ROUTINE BLEEDING)
     Dates: start: 19750908
  2. BENEFIX [Suspect]
     Active Substance: COAGULATION FACTOR IX RECOMBINANT HUMAN\ISOPROPYL ALCOHOL
     Dosage: 6000 IU, UNK (FOR CRISIS BLEEDING)
     Dates: start: 19750908

REACTIONS (2)
  - Haemorrhage [Unknown]
  - Tooth disorder [Unknown]

NARRATIVE: CASE EVENT DATE: 20150101
